FAERS Safety Report 6371170-3 (Version None)
Quarter: 2009Q3

REPORT INFORMATION
  Report Type: 
  Country: None (occurrence: None)
  Receive Date: 20090923
  Receipt Date: 20090909
  Transmission Date: 20100115
  Serious: Yes (Hospitalization)
  Sender: FDA-Public Use
  Company Number: US-MYLANLABS-2009S1015896

PATIENT
  Age: 55 Year
  Sex: Female

DRUGS (5)
  1. AZATHIOPRINE [Suspect]
     Indication: AUTOIMMUNE HEPATITIS
     Dosage: 50 MG/DAY
     Dates: start: 20070101
  2. AZATHIOPRINE [Suspect]
     Dosage: 100 MG/DAY
     Dates: start: 20070101
  3. AZATHIOPRINE [Suspect]
     Dosage: 150 MG/DAY
     Dates: start: 20070101
  4. PREDNISONE [Suspect]
     Indication: DRUG USE FOR UNKNOWN INDICATION
  5. COTRIM [Concomitant]
     Dosage: DOSAGE NOT STATED

REACTIONS (2)
  - PNEUMONIA [None]
  - RESPIRATORY FAILURE [None]
